FAERS Safety Report 5202231-X (Version None)
Quarter: 2007Q1

REPORT INFORMATION
  Report Type: 
  Country: None (occurrence: None)
  Receive Date: 20070109
  Receipt Date: 20070104
  Transmission Date: 20070707
  Serious: Yes (Death, Hospitalization, Other)
  Sender: FDA-Public Use
  Company Number: US-NOVOPROD-259747

PATIENT
  Age: 79 Year
  Sex: Female

DRUGS (1)
  1. NOVOSEVEN [Suspect]
     Indication: HAEMORRHAGE INTRACRANIAL
     Dosage: 120 UG/KG, SINGLE
     Route: 042

REACTIONS (5)
  - CARDIO-RESPIRATORY ARREST [None]
  - CLOSTRIDIUM DIFFICILE COLITIS [None]
  - HEMIPARESIS [None]
  - PNEUMONIA [None]
  - SEPSIS [None]
